FAERS Safety Report 8387609 (Version 9)
Quarter: 2014Q1

REPORT INFORMATION
  Report Type: Spontaneous
  Country: JP (occurrence: JP)
  Receive Date: 20120202
  Receipt Date: 20140303
  Transmission Date: 20141002
  Serious: Yes (Death, Life-Threatening, Hospitalization, Other)
  Sender: FDA-Public Use
  Company Number: JP-TEVA-2011004124

PATIENT
  Age: 51 Year
  Sex: Male
  Weight: 66 kg

DRUGS (9)
  1. BENDAMUSTINE [Suspect]
     Indication: B-CELL LYMPHOMA
     Dosage: 120 MG/M2 DAILY;
     Route: 042
     Dates: start: 20110222, end: 20110223
  2. BENDAMUSTINE [Suspect]
     Dosage: 120 MG/M2 DAILY;
     Route: 042
     Dates: start: 20110324, end: 20110325
  3. BENDAMUSTINE [Suspect]
     Dosage: 120 MG/M2 DAILY;
     Route: 042
     Dates: start: 20110421, end: 20110422
  4. BENDAMUSTINE [Suspect]
     Dosage: 90 MG/M2 DAILY;
     Route: 042
     Dates: start: 2011
  5. COIX SEED [Concomitant]
     Indication: SKIN PAPILLOMA
     Dates: start: 20110303, end: 20110330
  6. REBAMIPIDE [Concomitant]
     Indication: GASTRITIS
     Dosage: 300 MILLIGRAM DAILY;
     Dates: start: 20110222, end: 20111213
  7. SULFAMETHOXAZOLE/TRIMETHOPRIM [Concomitant]
     Indication: PROPHYLAXIS
     Dosage: 1 TABLET DAILY;
     Dates: start: 20110222, end: 20111213
  8. ACYCLOVIR [Concomitant]
     Indication: PROPHYLAXIS
     Dosage: 200 MILLIGRAM DAILY;
     Dates: start: 20110222, end: 20110726
  9. ALLOPURINOL [Concomitant]
     Indication: HYPERURICAEMIA
     Dosage: 100 MILLIGRAM DAILY;
     Dates: start: 20110303, end: 20110525

REACTIONS (12)
  - Multi-organ failure [Fatal]
  - Histiocytosis haematophagic [Fatal]
  - Cytomegalovirus infection [Fatal]
  - Enterocolitis [Unknown]
  - Cytomegalovirus hepatitis [Unknown]
  - Cytomegalovirus chorioretinitis [Unknown]
  - Cardiac arrest [Recovered/Resolved]
  - Hyperkalaemia [Unknown]
  - Renal failure acute [Unknown]
  - Cytomegalovirus gastroenteritis [Unknown]
  - CD4/CD8 ratio decreased [Unknown]
  - Immunosuppression [Unknown]
